FAERS Safety Report 17933532 (Version 1)
Quarter: 2020Q2

REPORT INFORMATION
  Report Type: Spontaneous
  Country: ES (occurrence: ES)
  Receive Date: 20200623
  Receipt Date: 20200623
  Transmission Date: 20200714
  Serious: Yes (Hospitalization)
  Sender: FDA-Public Use
  Company Number: ES-PFIZER INC-2020238772

PATIENT
  Age: 78 Year
  Sex: Female

DRUGS (5)
  1. MANTINEX [Suspect]
     Active Substance: MEMANTINE
     Indication: COGNITIVE DISORDER
     Dosage: UNK
     Route: 048
     Dates: start: 20200305, end: 20200518
  2. PARACETAMOL [Concomitant]
     Active Substance: ACETAMINOPHEN
     Dosage: UNK
  3. SERTRALINE HCL [Suspect]
     Active Substance: SERTRALINE HYDROCHLORIDE
     Dosage: UNK
     Route: 048
     Dates: start: 20200305, end: 20200518
  4. PRANZO [CARNITINE HYDROCHLORIDE/CYPROHEPTADINE HYDROCHLORIDE/LYSINE HYDROCHLORIDE] [Suspect]
     Active Substance: CARNITINE CHLORIDE\CYPROHEPTADINE HYDROCHLORIDE\LYSINE HYDROCHLORIDE
     Indication: DECREASED APPETITE
     Dosage: UNK
     Route: 048
     Dates: start: 202004, end: 20200427
  5. DISTRANEURINE [CLOMETHIAZOLE EDISILATE] [Concomitant]
     Dosage: UNK

REACTIONS (1)
  - Hepatitis cholestatic [Unknown]

NARRATIVE: CASE EVENT DATE: 20200427
